FAERS Safety Report 18078730 (Version 1)
Quarter: 2020Q3

REPORT INFORMATION
  Report Type: Spontaneous
  Country: US (occurrence: US)
  Receive Date: 20200728
  Receipt Date: 20200728
  Transmission Date: 20201103
  Serious: No
  Sender: FDA-Public Use
  Company Number: US-SA-2020SA194750

PATIENT

DRUGS (1)
  1. DUPIXENT [Suspect]
     Active Substance: DUPILUMAB
     Indication: ASTHMA
     Dosage: UNK UNK, 1X
     Dates: start: 20200722, end: 20200722

REACTIONS (6)
  - Eye disorder [Unknown]
  - Herpes virus infection [Unknown]
  - Headache [Unknown]
  - Dizziness [Unknown]
  - Dysarthria [Unknown]
  - Asthenia [Unknown]

NARRATIVE: CASE EVENT DATE: 202007
